FAERS Safety Report 7426802-5 (Version None)
Quarter: 2011Q2

REPORT INFORMATION
  Report Type: 
  Country: None (occurrence: None)
  Receive Date: 20110420
  Receipt Date: 20110415
  Transmission Date: 20111010
  Serious: Yes (Hospitalization, Other)
  Sender: FDA-Public Use
  Company Number: BR-BRISTOL-MYERS SQUIBB COMPANY-15616931

PATIENT
  Age: 59 Year
  Sex: Female
  Weight: 90 kg

DRUGS (6)
  1. THIOCTACID [Concomitant]
     Dosage: ON 16MAR2011 RECEIVED 2 TABS
     Dates: start: 20110304
  2. PANTOPRAZOLE [Concomitant]
     Dates: start: 20100101
  3. COVERSYL [Concomitant]
     Dates: start: 20000101
  4. ONGLYZA [Suspect]
     Indication: TYPE 2 DIABETES MELLITUS
     Route: 048
     Dates: start: 20110304
  5. FLUOXETINE [Concomitant]
     Dates: start: 19950101
  6. TENORETIC [Concomitant]
     Dates: start: 20000101

REACTIONS (5)
  - BLOOD PRESSURE INCREASED [None]
  - BLOOD GLUCOSE INCREASED [None]
  - CHEST DISCOMFORT [None]
  - DYSGEUSIA [None]
  - MEDICATION ERROR [None]
